FAERS Safety Report 12589003 (Version 1)
Quarter: 2016Q3

REPORT INFORMATION
  Report Type: Spontaneous
  Country: GB (occurrence: GB)
  Receive Date: 20160725
  Receipt Date: 20160725
  Transmission Date: 20161109
  Serious: Yes (Other)
  Sender: FDA-Public Use
  Company Number: PHHY2016GB097227

PATIENT
  Age: 41 Year
  Sex: Female
  Weight: 72 kg

DRUGS (5)
  1. NALTREXONE [Concomitant]
     Active Substance: NALTREXONE
     Indication: PRODUCT USED FOR UNKNOWN INDICATION
     Route: 065
  2. MIRTAZAPINE. [Suspect]
     Active Substance: MIRTAZAPINE
     Dosage: 45 MG, UNK
     Route: 048
     Dates: start: 20160630
  3. MIRTAZAPINE. [Suspect]
     Active Substance: MIRTAZAPINE
     Dosage: 15 MG, IT WAS 15 AND 30MG ORAL MIRTAZAPINE IN PAST
     Route: 048
  4. SERC [Concomitant]
     Active Substance: BETAHISTINE HYDROCHLORIDE
     Indication: MENIERE^S DISEASE
     Route: 065
  5. MIRTAZAPINE. [Suspect]
     Active Substance: MIRTAZAPINE
     Indication: DEPRESSION
     Dosage: 30 MG, IT WAS 15 AND 30MG ORAL MIRTAZAPINE IN PAST
     Route: 048

REACTIONS (12)
  - Pruritus [Unknown]
  - Feeling abnormal [Not Recovered/Not Resolved]
  - Thyroglobulin increased [Unknown]
  - Fatigue [Not Recovered/Not Resolved]
  - Pruritus generalised [Not Recovered/Not Resolved]
  - Dyspnoea [Not Recovered/Not Resolved]
  - Back pain [Not Recovered/Not Resolved]
  - Confusional state [Not Recovered/Not Resolved]
  - Memory impairment [Not Recovered/Not Resolved]
  - Bone pain [Not Recovered/Not Resolved]
  - Depressive symptom [Not Recovered/Not Resolved]
  - Suicidal ideation [Unknown]

NARRATIVE: CASE EVENT DATE: 20160630
